FAERS Safety Report 19452503 (Version 2)
Quarter: 2021Q2

REPORT INFORMATION
  Report Type: Report from Study
  Country: PL (occurrence: PL)
  Receive Date: 20210623
  Receipt Date: 20210625
  Transmission Date: 20210717
  Serious: Yes (Hospitalization)
  Sender: FDA-Public Use
  Company Number: PL-ROCHE-2818561

PATIENT
  Age: 70 Year
  Sex: Male
  Weight: 98 kg

DRUGS (37)
  1. POLATUZUMAB VEDOTIN. [Suspect]
     Active Substance: POLATUZUMAB VEDOTIN
     Indication: B-CELL LYMPHOMA
     Dosage: THE PATIENT RECEIVED THE MOST RECENT DOSE OF POLATUZUMAB VEDOTIN ON 20/MAY/2021 (189 MG) PRIOR TO PE
     Route: 042
     Dates: start: 20210401
  2. ELIQUIS [Concomitant]
     Active Substance: APIXABAN
     Route: 048
     Dates: start: 20201116
  3. MILURIT [Concomitant]
     Active Substance: ALLOPURINOL
     Route: 048
     Dates: start: 20210401
  4. AMERTIL [Concomitant]
     Active Substance: CETIRIZINE HYDROCHLORIDE
     Route: 048
     Dates: start: 20210401, end: 20210402
  5. SIOFOR [Concomitant]
     Active Substance: METFORMIN HYDROCHLORIDE
     Route: 048
     Dates: start: 20210430
  6. THYROZOL [Concomitant]
     Active Substance: METHIMAZOLE
     Route: 048
     Dates: start: 201809
  7. ZARZIO [Concomitant]
     Active Substance: FILGRASTIM
     Route: 058
     Dates: start: 20210521, end: 20210525
  8. LEVOXA [Concomitant]
     Active Substance: LEVOFLOXACIN
     Route: 048
     Dates: start: 20210402, end: 20210406
  9. AMERTIL [Concomitant]
     Active Substance: CETIRIZINE HYDROCHLORIDE
     Route: 048
     Dates: start: 20210415, end: 20210415
  10. DEXAMETHASONE. [Concomitant]
     Active Substance: DEXAMETHASONE
     Route: 042
     Dates: start: 20210408, end: 20210408
  11. DOXORUBICIN [Suspect]
     Active Substance: DOXORUBICIN
     Indication: B-CELL LYMPHOMA
     Dosage: THE PATIENT RECEIVED THE MOST RECENT DOSE OF DOXORUBICIN (110 MG) ON 20/MAY/2021, 10/JUN/2021 PRIOR
     Route: 042
     Dates: start: 20210401
  12. ATORIS [Concomitant]
     Active Substance: ATORVASTATIN CALCIUM
     Route: 048
     Dates: start: 200101
  13. AMERTIL [Concomitant]
     Active Substance: CETIRIZINE HYDROCHLORIDE
     Route: 048
     Dates: start: 20210610, end: 20210610
  14. ZAMUR [Concomitant]
     Active Substance: CEFUROXIME AXETIL
     Route: 048
     Dates: start: 20210412, end: 20210418
  15. IPP (POLAND) [Concomitant]
     Route: 048
     Dates: start: 20201215
  16. ENCORTON [Concomitant]
     Active Substance: PREDNISONE
     Route: 048
     Dates: start: 20210325, end: 20210331
  17. DEXAMETHASONE. [Concomitant]
     Active Substance: DEXAMETHASONE
     Route: 042
     Dates: start: 20210415, end: 20210415
  18. CYCLOPHOSPHAMIDE. [Suspect]
     Active Substance: CYCLOPHOSPHAMIDE
     Indication: B-CELL LYMPHOMA
     Dosage: THE PATIENT RECEIVED THE MOST RECENT DOSE OF CYCLOPHOSPHAMIDE (1665 MG) ON 20/MAY/2021, 10/JUN/2021
     Route: 042
     Dates: start: 20210401
  19. PARACETAMOL [Concomitant]
     Active Substance: ACETAMINOPHEN
     Route: 048
     Dates: start: 20210610, end: 20210610
  20. HEVIRAN [Concomitant]
     Active Substance: ACYCLOVIR
     Route: 048
     Dates: start: 20210409
  21. ZARZIO [Concomitant]
     Active Substance: FILGRASTIM
     Dosage: 48 U
     Route: 048
     Dates: start: 20210611, end: 20210615
  22. ZARZIO [Concomitant]
     Active Substance: FILGRASTIM
     Route: 058
     Dates: start: 20210402, end: 20210406
  23. CLEMASTIN [Concomitant]
     Active Substance: CLEMASTINE
     Route: 042
     Dates: start: 20210520, end: 20210520
  24. DEXAVEN [Concomitant]
     Active Substance: DEXAMETHASONE
     Route: 042
     Dates: start: 20210402, end: 20210402
  25. PYRALGIN (POLAND) [Concomitant]
     Route: 042
     Dates: start: 20210402, end: 20210402
  26. PREDNISONE. [Suspect]
     Active Substance: PREDNISONE
     Indication: B-CELL LYMPHOMA
     Dosage: START DATE OF MOST RECENT DOSE OF STUDY DRUG (100 MG) PRIOR TO SAE: 05/APR/2021?START DATE OF MOST R
     Route: 042
     Dates: start: 20210401
  27. METOCARD ZK [Concomitant]
     Active Substance: METOPROLOL TARTRATE
     Route: 048
     Dates: start: 202101
  28. DIUVER [Concomitant]
     Active Substance: TORSEMIDE
     Route: 048
     Dates: start: 20201218, end: 20210429
  29. AVASART [Concomitant]
     Route: 048
     Dates: start: 20201218
  30. PARACETAMOL [Concomitant]
     Active Substance: ACETAMINOPHEN
     Route: 048
     Dates: start: 20210520, end: 20210520
  31. ALLERTEC [Concomitant]
     Active Substance: CETIRIZINE HYDROCHLORIDE
     Route: 048
     Dates: start: 20210408, end: 20210408
  32. MOSUNETUZUMAB. [Suspect]
     Active Substance: MOSUNETUZUMAB
     Indication: B-CELL LYMPHOMA
     Dosage: START DATE OF MOST RECENT DOSE OF STUDY DRUG PRIOR TO SAE: 22/APR/2021 (30 MG) FOR THE EVENT PERIOST
     Route: 042
     Dates: start: 20210401
  33. PARACETAMOL [Concomitant]
     Active Substance: ACETAMINOPHEN
     Route: 048
     Dates: start: 20210401, end: 20210401
  34. AMERTIL [Concomitant]
     Active Substance: CETIRIZINE HYDROCHLORIDE
     Route: 048
     Dates: start: 20210520, end: 20210520
  35. CLEMASTIN [Concomitant]
     Active Substance: CLEMASTINE
     Route: 042
     Dates: start: 20210401, end: 20210402
  36. BISEPTOL [Concomitant]
     Active Substance: SULFAMETHOXAZOLE\TRIMETHOPRIM
     Route: 048
     Dates: start: 20210409
  37. CLEMASTIN [Concomitant]
     Active Substance: CLEMASTINE
     Route: 048
     Dates: start: 20210610, end: 20210610

REACTIONS (4)
  - Ulcer [Recovered/Resolved with Sequelae]
  - Fistula [Recovered/Resolved]
  - Anastomotic ulcer [Recovered/Resolved with Sequelae]
  - Anaemia [Recovered/Resolved]

NARRATIVE: CASE EVENT DATE: 20210422
